FAERS Safety Report 13167047 (Version 1)
Quarter: 2017Q1

REPORT INFORMATION
  Report Type: Spontaneous
  Country: US (occurrence: US)
  Receive Date: 20170126
  Receipt Date: 20170126
  Transmission Date: 20170428
  Serious: No
  Sender: FDA-Public Use
  Company Number: None

PATIENT
  Age: 26 Year
  Sex: Male
  Weight: 76.5 kg

DRUGS (2)
  1. FISH OIL GUMMY VITAMINS [Concomitant]
  2. CYCLOBENZAPRINE [Suspect]
     Active Substance: CYCLOBENZAPRINE
     Indication: BACK PAIN
     Dosage: ?          QUANTITY:1 TABLET(S);?
     Route: 048
     Dates: start: 20170125, end: 20170125

REACTIONS (7)
  - Tremor [None]
  - Muscular weakness [None]
  - Headache [None]
  - Pyrexia [None]
  - Chest discomfort [None]
  - Dry mouth [None]
  - Dyspnoea [None]

NARRATIVE: CASE EVENT DATE: 20170126
